FAERS Safety Report 23340868 (Version 2)
Quarter: 2024Q1

REPORT INFORMATION
  Report Type: Spontaneous
  Country: NP (occurrence: NP)
  Receive Date: 20231227
  Receipt Date: 20240103
  Transmission Date: 20240410
  Serious: Yes (Other)
  Sender: FDA-Public Use
  Company Number: NP-ALKEM LABORATORIES LIMITED-NP-ALKEM-2023-16262

PATIENT
  Age: 31 Year
  Sex: Male

DRUGS (6)
  1. TACROLIMUS [Suspect]
     Active Substance: TACROLIMUS
     Indication: Immunosuppressant drug therapy
     Dosage: 1.5 MILLIGRAM, QD (1 MG AND 0.5 MG IN MORNING AND EVENING)
     Route: 065
  2. MYCOPHENOLATE MOFETIL [Suspect]
     Active Substance: MYCOPHENOLATE MOFETIL
     Indication: Immunosuppressant drug therapy
     Dosage: 500 MILLIGRAM, TID (THREE TIMES A DAY)
     Route: 065
  3. PREDNISOLONE [Suspect]
     Active Substance: PREDNISOLONE
     Indication: Immunosuppressant drug therapy
     Dosage: 5 MILLIGRAM, OD (ONCE A DAY)
     Route: 065
  4. GLICLAZIDE [Concomitant]
     Active Substance: GLICLAZIDE
     Indication: Diabetes mellitus
     Dosage: 40 MILLIGRAM, OD (ONCE A DAY)
     Route: 065
  5. METFORMIN [Concomitant]
     Active Substance: METFORMIN HYDROCHLORIDE
     Indication: Diabetes mellitus
     Dosage: 500 MILLIGRAM, OD (ONCE A DAY)
     Route: 065
  6. AMLODIPINE [Concomitant]
     Active Substance: AMLODIPINE BESYLATE
     Indication: Hypertension
     Dosage: 5 MILLIGRAM, OD (ONCE A DAY)
     Route: 065

REACTIONS (5)
  - Haemorrhage intracranial [Recovered/Resolved]
  - Encephalitis [Recovered/Resolved]
  - Pneumonia [Recovered/Resolved]
  - Staphylococcal bacteraemia [Recovered/Resolved]
  - Drug level increased [Recovered/Resolved]
